APPROVED DRUG PRODUCT: MYCELEX
Active Ingredient: CLOTRIMAZOLE
Strength: 1%
Dosage Form/Route: CREAM;TOPICAL
Application: N018183 | Product #001
Applicant: BAYER HEALTHCARE LLC
Approved: Approved Prior to Jan 1, 1982 | RLD: No | RS: No | Type: DISCN